FAERS Safety Report 17093883 (Version 2)
Quarter: 2019Q4

REPORT INFORMATION
  Report Type: Spontaneous
  Country: DE (occurrence: DE)
  Receive Date: 20191129
  Receipt Date: 20191202
  Transmission Date: 20200122
  Serious: Yes (Hospitalization)
  Sender: FDA-Public Use
  Company Number: DE-MYLANLABS-2019M1115464

PATIENT
  Age: 86 Year
  Sex: Female
  Weight: 73 kg

DRUGS (9)
  1. BISOPROLOL [Concomitant]
     Active Substance: BISOPROLOL
     Dosage: 5 MILLIGRAM, QD, (1-0-0; Z.Z. PAUSIERT, TABLETTEN)
     Route: 048
  2. PRAMIPEXOL                         /01356401/ [Concomitant]
     Active Substance: PRAMIPEXOLE
     Dosage: 0.088 MILLIGRAM, QD, (0-0-1, TABLETTEN)
     Route: 048
  3. NAPROXEN. [Suspect]
     Active Substance: NAPROXEN
     Indication: PRODUCT USED FOR UNKNOWN INDICATION
     Dosage: 500 MG, (B.B.; LETZTE EINNAHME 05.06.2017, TABLETTEN)
     Route: 048
  4. APROVEL [Concomitant]
     Active Substance: IRBESARTAN
     Dosage: 300 MILLIGRAM, QD, (1-0-0, TABLETTEN)
     Route: 048
  5. XARELTO [Concomitant]
     Active Substance: RIVAROXABAN
     Dosage: 20 MILLIGRAM, QD, (1-0-0, TABLETTEN)
     Route: 048
  6. AMLODIPINE [Suspect]
     Active Substance: AMLODIPINE BESYLATE
     Indication: PRODUCT USED FOR UNKNOWN INDICATION
     Dosage: 5 MILLIGRAM, QD, (1-0-0; Z.Z. PAUSIERT, TABLETTEN)
     Route: 048
  7. ACTRAPHANE [Concomitant]
     Active Substance: INSULIN HUMAN
     Dosage: 30 INTERNATIONAL UNIT, (52-0-20, TABLETTEN  )
     Route: 048
  8. ATORVASTATIN [Concomitant]
     Active Substance: ATORVASTATIN
     Dosage: 60 MILLIGRAM, QD, (0-0-1, TABLETTEN)
     Route: 048
  9. TORASEMID [Concomitant]
     Active Substance: TORSEMIDE
     Dosage: 10 MILLIGRAM, QD, (1-0-0, TABLETTEN)
     Route: 048

REACTIONS (5)
  - Abdominal pain upper [Unknown]
  - Haematemesis [Unknown]
  - Medication error [Unknown]
  - Vomiting [Unknown]
  - Retching [Unknown]
